FAERS Safety Report 9120336 (Version 1)
Quarter: 2013Q1

REPORT INFORMATION
  Report Type: Spontaneous
  Country: US (occurrence: US)
  Receive Date: 20130226
  Receipt Date: 20130226
  Transmission Date: 20140127
  Serious: Yes (Hospitalization)
  Sender: FDA-Public Use
  Company Number: US-SANOFI-AVENTIS-2013SA016956

PATIENT
  Age: 63 Year
  Sex: Female
  Weight: 84 kg

DRUGS (23)
  1. PLAQUENIL [Suspect]
     Indication: RHEUMATOID ARTHRITIS
     Dates: end: 20121103
  2. HUMIRA [Suspect]
     Indication: RHEUMATOID ARTHRITIS
     Dates: start: 20121022, end: 20121103
  3. DIOVANE [Concomitant]
     Indication: HYPERTENSION
  4. NIFEDIPINE [Concomitant]
     Indication: HYPERTENSION
  5. TOPROL XL [Concomitant]
     Indication: HYPERTENSION
  6. ASPIRIN [Concomitant]
  7. NITROGLYCERIN ^SLOVAKOFARMA^ [Concomitant]
     Indication: CHEST PAIN
     Dosage: AS REQUIRED
  8. LEVOXYL [Concomitant]
     Indication: HYPERTHYROIDISM
     Dosage: 1/2 TABLET DAILY 62.5 MCG, 1 IN 1 DAY
  9. PROTONIX [Concomitant]
     Indication: GASTROOESOPHAGEAL REFLUX DISEASE
     Dosage: 40 MG TWICE IN 1 DAY
  10. FLOVENT [Concomitant]
     Indication: CHRONIC OBSTRUCTIVE PULMONARY DISEASE
     Dosage: 2 PUFF 2 IN 1 DAY
  11. PROAIRE [Concomitant]
     Dosage: 2 PUFF, 4 IN 1 DAY DOSE:8 PUFF(S)
  12. ATROVENT [Concomitant]
     Indication: CHRONIC OBSTRUCTIVE PULMONARY DISEASE
     Dosage: 2 PUFF, 4 IN 1 DAY
  13. FLONASE [Concomitant]
     Dosage: 1-2 SPRAY INTO EACH NOSTRIL 2 IN 1 DAY
  14. CALCIUM CARBONATE [Concomitant]
     Dosage: 500/200 MG
  15. MULTIVITAMINS [Concomitant]
     Dosage: 1 IN 1 DAY
  16. EPI PEN [Concomitant]
     Dosage: AS REQUIRED
  17. PERIDEX [Concomitant]
     Route: 048
  18. COLACE [Concomitant]
     Indication: CONSTIPATION
     Dosage: 100 MG, 2 IN 1 DAY
  19. NEBUMATONE [Concomitant]
     Dosage: 500 MG, 2 IN 1 DAY
  20. MELOXICAM [Concomitant]
     Indication: RHEUMATOID ARTHRITIS
     Dosage: 7.5 MG, 1 IN 1 DAY
  21. PERCOCET [Concomitant]
     Indication: PAIN
     Dosage: ONCE EVERY SIX HOURS AS REQUIRED
  22. PREDNISONE [Concomitant]
  23. VALIUM [Concomitant]
     Indication: ANXIETY
     Dosage: 5 MG ONCE EVERY 8 HOURS AS REQUIRED

REACTIONS (12)
  - Hyperhidrosis [Unknown]
  - Hypersensitivity [Unknown]
  - Rash pruritic [Unknown]
  - Drug hypersensitivity [Unknown]
  - Malaise [Unknown]
  - Pyrexia [Unknown]
  - Scab [Unknown]
  - Dyspnoea [Unknown]
  - Cough [Unknown]
  - Visual impairment [Unknown]
  - Nausea [Unknown]
  - Headache [Unknown]
